FAERS Safety Report 6310212-8 (Version None)
Quarter: 2009Q3

REPORT INFORMATION
  Report Type: 
  Country: None (occurrence: None)
  Receive Date: 20090814
  Receipt Date: 20090731
  Transmission Date: 20100115
  Serious: Yes (Hospitalization, Other)
  Sender: FDA-Public Use
  Company Number: DE-WYE-H10582409

PATIENT
  Age: 72 Year
  Sex: Female

DRUGS (2)
  1. CORDAREX [Suspect]
     Dosage: 200 MG, FREQUENCY UNSPECIFIED
     Route: 048
     Dates: start: 20081101
  2. OMEPRAZOLE [Concomitant]
     Dosage: DOSE UNKNOWN
     Route: 048
     Dates: start: 20081101

REACTIONS (3)
  - CONDITION AGGRAVATED [None]
  - RENAL FAILURE [None]
  - TUBULOINTERSTITIAL NEPHRITIS [None]
